FAERS Safety Report 7527502-3 (Version None)
Quarter: 2011Q2

REPORT INFORMATION
  Report Type: 
  Country: None (occurrence: None)
  Receive Date: 20110607
  Receipt Date: 20110523
  Transmission Date: 20111010
  Serious: Yes (Death)
  Sender: FDA-Public Use
  Company Number: US-BAYER-200917730NA

PATIENT
  Age: 67 Year
  Sex: Male
  Weight: 110.66 kg

DRUGS (34)
  1. TRASYLOL [Suspect]
     Dosage: 10,000
     Route: 042
     Dates: start: 20070709
  2. HYDROCHLOROTHIAZIDE [Concomitant]
     Dosage: 10/12.5MG/TWICE A DAY
  3. GLUCOPHAGE [Concomitant]
     Dosage: 1000 MG, BID
  4. LOTENSIN [Concomitant]
     Dosage: 20/12.5MG DAILY
     Route: 048
  5. EPINEPHRINE [Concomitant]
     Dosage: 5MCG/KG PER MINUTE
     Route: 042
     Dates: start: 20070709
  6. INOCOR [Concomitant]
     Dosage: UNK
     Route: 042
     Dates: start: 20070709
  7. PRECEDEX [Concomitant]
  8. TOPROL-XL [Concomitant]
     Dosage: 50 MG, UNK
  9. PROCRIT [Concomitant]
  10. VANCOMYCIN [Concomitant]
     Dosage: 500 MG, UNK
     Dates: start: 20070709
  11. TRASYLOL [Suspect]
     Dosage: 200 ML PUMP PRIME
     Route: 042
     Dates: start: 20070709, end: 20070709
  12. REGULAR INSULIN [Concomitant]
     Dosage: 4 U, UNK
     Route: 042
     Dates: start: 20070709
  13. LASIX [Concomitant]
     Dosage: 40 MG, UNK
  14. ALBUTEROL SULFATE AUTOHALER [Concomitant]
     Dosage: 90 MCG/24HR, UNK
  15. HEPARIN [Concomitant]
     Dosage: UNK
     Dates: start: 20070709
  16. ZINACEF [Concomitant]
     Dosage: 750 G, UNK
     Dates: start: 20070709
  17. ACETYLSALICYLIC ACID SRT [Concomitant]
     Dosage: 81 MG, QD
     Route: 048
  18. MIDAZOLAM [Concomitant]
     Dosage: 5 MG
     Route: 042
     Dates: start: 20070709
  19. TRASYLOL [Suspect]
     Indication: CORONARY ARTERY BYPASS
     Dosage: 200 ML, FOLLOWED BY 50CC/HR
     Route: 042
     Dates: start: 20070709, end: 20070709
  20. NORVASC [Concomitant]
     Dosage: 10 MG, QD
  21. INSULIN [INSULIN HUMAN] [Concomitant]
     Dosage: DAILY
  22. CRESTOR [Concomitant]
     Dosage: 10 MG, QD
  23. PANCURONIUM [Concomitant]
     Dosage: 10 MG, UNK
     Route: 042
     Dates: start: 20070709
  24. THIOPENTAL SODIUM [Concomitant]
     Dosage: 500 MG, UNK
     Route: 042
     Dates: start: 20070709
  25. MIDAZOLAM [Concomitant]
     Dosage: 11 MG, UNK
     Route: 042
     Dates: start: 20070709
  26. NEOSYNEPHRINE [Concomitant]
     Dosage: 80 MG, UNK
     Route: 042
     Dates: start: 20070709
  27. MANNITOL [Concomitant]
     Dosage: 25%/ 12.5 GRAM
     Dates: start: 20070709
  28. SUCCINYLCHOLINE CHLORIDE [Concomitant]
     Dosage: 100 MG, UNK
     Route: 042
     Dates: start: 20070709
  29. AVELOX [Concomitant]
     Dosage: 400 MG, UNK
  30. ZINACEF [Concomitant]
     Dosage: 1.5 G, UNK
     Dates: start: 20070709
  31. EPINEPHRINE [Concomitant]
     Dosage: 6MCG PER MINUTE
     Route: 042
     Dates: start: 20070709
  32. PROTAMINE SULFATE [Concomitant]
     Dosage: 300 MG, UNK
     Route: 042
     Dates: start: 20070709
  33. DOPAMINE HCL [Concomitant]
  34. FENTANYL [Concomitant]
     Dosage: 10 MCG
     Route: 042
     Dates: start: 20070709

REACTIONS (5)
  - ANXIETY [None]
  - CEREBROVASCULAR ACCIDENT [None]
  - INJURY [None]
  - RENAL FAILURE [None]
  - EMOTIONAL DISTRESS [None]
